FAERS Safety Report 5298883-9 (Version None)
Quarter: 2007Q2

REPORT INFORMATION
  Report Type: 
  Country: None (occurrence: None)
  Receive Date: 20070417
  Receipt Date: 20070405
  Transmission Date: 20071010
  Serious: Yes (Hospitalization, Other)
  Sender: FDA-Public Use
  Company Number: US-AMGEN-US188124

PATIENT
  Sex: Male

DRUGS (10)
  1. PANITUMUMAB [Suspect]
     Indication: COLORECTAL CANCER
     Route: 042
     Dates: start: 20060612
  2. IRINOTECAN HCL [Suspect]
     Route: 042
  3. FLUOROURACIL [Suspect]
     Route: 042
  4. FOLINIC ACID [Concomitant]
     Route: 042
  5. ATENOLOL [Concomitant]
     Route: 065
  6. PRINIVIL [Concomitant]
     Route: 065
  7. LANOXIN [Concomitant]
  8. ASPIRIN [Concomitant]
     Route: 065
  9. METHADONE HCL [Concomitant]
     Route: 065
  10. MORPHINE [Concomitant]
     Route: 065

REACTIONS (4)
  - DEHYDRATION [None]
  - DIARRHOEA [None]
  - NAUSEA [None]
  - VOMITING [None]
